FAERS Safety Report 16964018 (Version 1)
Quarter: 2019Q4

REPORT INFORMATION
  Report Type: Spontaneous
  Country: FR (occurrence: FR)
  Receive Date: 20191026
  Receipt Date: 20191026
  Transmission Date: 20200122
  Serious: Yes (Hospitalization)
  Sender: FDA-Public Use
  Company Number: FR-ACCORD-158978

PATIENT
  Age: 87 Year
  Sex: Female
  Weight: 78 kg

DRUGS (10)
  1. CYMBALTA [Concomitant]
     Active Substance: DULOXETINE HYDROCHLORIDE
     Dosage: STRENGTH 30 MG
  2. SERESTA [Concomitant]
     Active Substance: OXAZEPAM
     Dosage: STRENGTH 10 MG
  3. ROSUVASTATIN. [Suspect]
     Active Substance: ROSUVASTATIN
     Indication: HYPERCHOLESTEROLAEMIA
     Route: 048
     Dates: end: 20190913
  4. NOVONORM [Suspect]
     Active Substance: REPAGLINIDE
     Indication: TYPE 2 DIABETES MELLITUS
     Dosage: STRENGTH 1 MG
     Route: 048
     Dates: start: 2019, end: 20190913
  5. JANUVIA [Concomitant]
     Active Substance: SITAGLIPTIN PHOSPHATE
     Dosage: STRENGTH 50 MG
  6. DICETEL [Concomitant]
     Active Substance: PINAVERIUM BROMIDE
     Dosage: STRENGTH 100 MG
  7. BUSPIRONE [Concomitant]
     Active Substance: BUSPIRONE HYDROCHLORIDE
  8. IRBESARTAN. [Concomitant]
     Active Substance: IRBESARTAN
  9. PARIET [Suspect]
     Active Substance: RABEPRAZOLE SODIUM
     Indication: PRODUCT USED FOR UNKNOWN INDICATION
     Dosage: STRENGTH 20 MG
     Route: 048
     Dates: end: 20190913
  10. TANGANIL [Concomitant]
     Active Substance: ACETYLLEUCINE

REACTIONS (2)
  - Cholestasis [Recovering/Resolving]
  - Hepatocellular injury [Recovering/Resolving]

NARRATIVE: CASE EVENT DATE: 20190909
